FAERS Safety Report 19187309 (Version 3)
Quarter: 2021Q2

REPORT INFORMATION
  Report Type: Report from Study
  Country: None (occurrence: US)
  Receive Date: 20210427
  Receipt Date: 20210612
  Transmission Date: 20210717
  Serious: Yes (Life-Threatening, Hospitalization)
  Sender: FDA-Public Use
  Company Number: US-ABBVIE-21P-163-3871808-00

PATIENT
  Age: 71 Year
  Sex: Female
  Weight: 104.42 kg

DRUGS (15)
  1. UPADACITINIB [Suspect]
     Active Substance: UPADACITINIB
     Indication: RHEUMATOID ARTHRITIS
     Route: 048
     Dates: start: 20200617, end: 20210411
  2. LEFLUNOMIDE. [Concomitant]
     Active Substance: LEFLUNOMIDE
     Indication: RHEUMATOID ARTHRITIS
     Route: 048
     Dates: start: 20130814
  3. TRIAMTERENE?HCTZ [Concomitant]
     Active Substance: HYDROCHLOROTHIAZIDE\TRIAMTERENE
     Indication: HYPERTENSION
     Dosage: 37.5?25 MG
     Route: 048
     Dates: start: 20130805
  4. XARELTO [Concomitant]
     Active Substance: RIVAROXABAN
     Indication: ATRIAL FIBRILLATION
     Route: 048
     Dates: start: 20190802
  5. IRON [Concomitant]
     Active Substance: IRON
     Indication: IRON DEFICIENCY ANAEMIA
     Route: 048
     Dates: start: 20200610
  6. FLUOROURACIL. [Concomitant]
     Active Substance: FLUOROURACIL
     Indication: SQUAMOUS CELL CARCINOMA OF SKIN
     Route: 061
     Dates: start: 20200706
  7. BENAZEPRIL [Concomitant]
     Active Substance: BENAZEPRIL HYDROCHLORIDE
     Route: 048
     Dates: start: 20170311, end: 20171207
  8. METOPROLOL. [Concomitant]
     Active Substance: METOPROLOL
     Route: 048
     Dates: start: 20191018
  9. NAPROXEN. [Concomitant]
     Active Substance: NAPROXEN
     Indication: RHEUMATOID ARTHRITIS
     Route: 048
     Dates: start: 20140702
  10. UPADACITINIB [Suspect]
     Active Substance: UPADACITINIB
     Indication: RHEUMATOID ARTHRITIS
     Route: 048
     Dates: start: 20161012, end: 20200616
  11. ATORVASTATIN [Concomitant]
     Active Substance: ATORVASTATIN
     Route: 048
     Dates: start: 20190726
  12. BENAZEPRIL [Concomitant]
     Active Substance: BENAZEPRIL HYDROCHLORIDE
     Route: 048
     Dates: start: 20171208
  13. METOPROLOL. [Concomitant]
     Active Substance: METOPROLOL
     Indication: ATRIAL FIBRILLATION
     Route: 048
     Dates: start: 20190712, end: 20191017
  14. ATORVASTATIN [Concomitant]
     Active Substance: ATORVASTATIN
     Indication: HYPERCHOLESTEROLAEMIA
     Route: 048
     Dates: start: 20150819, end: 20190725
  15. BENAZEPRIL [Concomitant]
     Active Substance: BENAZEPRIL HYDROCHLORIDE
     Indication: HYPERTENSION
     Route: 048
     Dates: start: 20130405, end: 20170310

REACTIONS (1)
  - Systemic inflammatory response syndrome [Recovered/Resolved]

NARRATIVE: CASE EVENT DATE: 20210409
